FAERS Safety Report 9564859 (Version 1)
Quarter: 2013Q3

REPORT INFORMATION
  Report Type: Spontaneous
  Country: US (occurrence: US)
  Receive Date: 20130930
  Receipt Date: 20130930
  Transmission Date: 20140515
  Serious: Yes (Death, Hospitalization)
  Sender: FDA-Public Use
  Company Number: US-CELGENEUS-163-POMAL-13093738

PATIENT
  Age: 52 Year
  Sex: Male
  Weight: 217 kg

DRUGS (4)
  1. POMALYST [Suspect]
     Indication: PLASMA CELL MYELOMA
     Route: 048
     Dates: start: 20130716, end: 2013
  2. POMALYST [Suspect]
     Route: 048
     Dates: start: 201308, end: 20130808
  3. POMALYST [Suspect]
     Route: 048
     Dates: start: 20130815, end: 201308
  4. POMALYST [Suspect]
     Route: 048
     Dates: start: 20130822

REACTIONS (3)
  - Death [Fatal]
  - Hepatic failure [Unknown]
  - Sepsis [Unknown]
